FAERS Safety Report 13509008 (Version 1)
Quarter: 2017Q2

REPORT INFORMATION
  Report Type: Spontaneous
  Country: US (occurrence: US)
  Receive Date: 20170503
  Receipt Date: 20170503
  Transmission Date: 20170830
  Serious: No
  Sender: FDA-Public Use
  Company Number: US-ASTRAZENECA-2017SE14836

PATIENT
  Age: 19027 Day
  Sex: Male
  Weight: 90.7 kg

DRUGS (3)
  1. VITAMIN B12 [Concomitant]
     Active Substance: CYANOCOBALAMIN
     Indication: SUPPLEMENTATION THERAPY
     Route: 048
     Dates: start: 20170128
  2. BYDUREON [Suspect]
     Active Substance: EXENATIDE
     Indication: TYPE 2 DIABETES MELLITUS
     Route: 058
     Dates: start: 20170115
  3. MULTIVITAMINS [Concomitant]
     Active Substance: VITAMINS
     Indication: SUPPLEMENTATION THERAPY
     Dosage: DAILY
     Route: 048
     Dates: start: 20170128

REACTIONS (3)
  - Injection site pain [Unknown]
  - Injection site erythema [Unknown]
  - Injection site nodule [Unknown]

NARRATIVE: CASE EVENT DATE: 20170207
